FAERS Safety Report 6993424-X (Version None)
Quarter: 2010Q3

REPORT INFORMATION
  Report Type: 
  Country: None (occurrence: None)
  Receive Date: 20100917
  Receipt Date: 20100127
  Transmission Date: 20110219
  Serious: No
  Sender: FDA-Public Use
  Company Number: US-ASTRAZENECA-2010SE03667

PATIENT
  Age: 46 Year
  Sex: Female
  Weight: 110.2 kg

DRUGS (14)
  1. SEROQUEL [Suspect]
     Indication: BIPOLAR I DISORDER
     Route: 048
     Dates: start: 20080101
  2. SEROQUEL [Suspect]
     Route: 048
     Dates: start: 20091001
  3. SEROQUEL [Suspect]
     Route: 048
     Dates: start: 20091101
  4. LEVOTHROID [Concomitant]
  5. HYZAAR [Concomitant]
  6. SINGULAIR [Concomitant]
  7. DILATAM [Concomitant]
  8. LIPITOR [Concomitant]
  9. METOPROLOL [Concomitant]
  10. ASPIRIN [Concomitant]
  11. FUROSEMIDE [Concomitant]
  12. GABAPENTIN [Concomitant]
  13. XANAX [Concomitant]
  14. EFFEXOR [Concomitant]

REACTIONS (6)
  - DIABETES MELLITUS [None]
  - DRUG DOSE OMISSION [None]
  - FOOT FRACTURE [None]
  - HYPERCHLORAEMIA [None]
  - PRURITUS [None]
  - WEIGHT INCREASED [None]
